FAERS Safety Report 8500804-X (Version None)
Quarter: 2012Q3

REPORT INFORMATION
  Report Type: 
  Country: None (occurrence: None)
  Receive Date: 20120710
  Receipt Date: 20120701
  Transmission Date: 20120928
  Serious: Yes (Other)
  Sender: FDA-Public Use
  Company Number: US-VERTEX PHARMACEUTICALS INC.-AE-2012-009840

PATIENT
  Sex: Female
  Weight: 74.456 kg

DRUGS (4)
  1. COPEGUS [Concomitant]
     Indication: HEPATITIS C
     Dates: start: 20120629
  2. INCIVEK [Suspect]
     Indication: HEPATITIS C
     Route: 048
     Dates: start: 20120629, end: 20120702
  3. PEGASYS [Concomitant]
     Indication: HEPATITIS C
     Route: 058
     Dates: start: 20120629
  4. ACETAMINOPHEN [Concomitant]
     Indication: PAIN

REACTIONS (1)
  - RASH GENERALISED [None]
